FAERS Safety Report 5318096-1 (Version None)
Quarter: 2007Q1

REPORT INFORMATION
  Report Type: 
  Country: None (occurrence: None)
  Receive Date: 20070207
  Receipt Date: 20070122
  Transmission Date: 20070707
  Serious: No
  Sender: FDA-Public Use
  Company Number: SPV1-2007-00312

PATIENT
  Age: 39 Year
  Sex: Male
  Weight: 145 kg

DRUGS (3)
  1. FOSRENOL [Suspect]
     Indication: HYPERPHOSPHATAEMIA
     Dosage: ORAL
     Route: 048
     Dates: start: 20060106
  2. TOPROL-XL [Concomitant]
  3. AVAPRO [Concomitant]

REACTIONS (2)
  - ANAEMIA [None]
  - BLOOD IRON ABNORMAL [None]
